FAERS Safety Report 5287280-8 (Version None)
Quarter: 2007Q1

REPORT INFORMATION
  Report Type: 
  Country: None (occurrence: None)
  Receive Date: 20070116
  Receipt Date: 20061006
  Transmission Date: 20070707
  Serious: No
  Sender: FDA-Public Use
  Company Number: 2006SP003579

PATIENT
  Age: 84 Year
  Sex: Male
  Weight: 108.8633 kg

DRUGS (3)
  1. LUNESTA [Suspect]
     Indication: INSOMNIA
     Dosage: 2 MG; PRN; ORAL
     Route: 048
     Dates: start: 20060801
  2. THYROID THERAPY [Concomitant]
  3. LUPRON [Concomitant]

REACTIONS (4)
  - BALANCE DISORDER [None]
  - DISORIENTATION [None]
  - FATIGUE [None]
  - GLAUCOMA [None]
